FAERS Safety Report 6716177-9 (Version None)
Quarter: 2010Q2

REPORT INFORMATION
  Report Type: 
  Country: None (occurrence: None)
  Receive Date: 20100507
  Receipt Date: 20100428
  Transmission Date: 20101027
  Serious: Yes (Other)
  Sender: FDA-Public Use
  Company Number: US-PFIZER INC-2010053891

PATIENT
  Sex: Female
  Weight: 80.7 kg

DRUGS (4)
  1. NEURONTIN [Suspect]
     Dosage: 100 MG, 3X/DAY
     Route: 048
     Dates: start: 20100101
  2. LAMICTAL [Interacting]
     Indication: BIPOLAR DISORDER
     Dosage: 200 MG, DAILY
     Route: 048
  3. ABILIFY [Concomitant]
     Indication: PSYCHOTIC DISORDER
     Dosage: UNK
  4. ALBUTEROL [Concomitant]
     Dosage: UNK

REACTIONS (7)
  - DIZZINESS [None]
  - DRUG INTERACTION [None]
  - DYSPNOEA [None]
  - ELECTROCARDIOGRAM ABNORMAL [None]
  - GAIT DISTURBANCE [None]
  - HEART RATE IRREGULAR [None]
  - PALPITATIONS [None]
